FAERS Safety Report 5867281-9 (Version None)
Quarter: 2008Q3

REPORT INFORMATION
  Report Type: 
  Country: None (occurrence: None)
  Receive Date: 20080902
  Receipt Date: 20080821
  Transmission Date: 20090109
  Serious: Yes (Hospitalization, Other)
  Sender: FDA-Public Use
  Company Number: GB-TEVA-176517ISR

PATIENT
  Age: 33 Year
  Sex: Female
  Weight: 75 kg

DRUGS (3)
  1. MESALAMINE [Suspect]
     Indication: CROHN'S DISEASE
     Route: 048
  2. INFLIXIMAB [Suspect]
     Indication: CROHN'S DISEASE
     Route: 042
  3. AZATHIOPRINE [Suspect]
     Route: 048

REACTIONS (2)
  - DEEP VEIN THROMBOSIS [None]
  - LUPUS-LIKE SYNDROME [None]
